FAERS Safety Report 7894639-9 (Version None)
Quarter: 2011Q4

REPORT INFORMATION
  Report Type: 
  Country: None (occurrence: None)
  Receive Date: 20111106
  Receipt Date: 20110817
  Transmission Date: 20120403
  Serious: No
  Sender: FDA-Public Use
  Company Number: US-AMGEN-USASP2011041920

PATIENT
  Age: 56 Year
  Sex: Female
  Weight: 145 kg

DRUGS (9)
  1. ZYRTEC [Concomitant]
     Dosage: 5 MG, UNK
  2. PROVENTIL-HFA [Concomitant]
     Dosage: UNK
  3. VITAMIN B-12 [Concomitant]
     Dosage: 50 UNK, UNK
  4. MULTI-VITAMIN [Concomitant]
  5. CALCIUM + VITAMIN D [Concomitant]
     Route: 058
  6. ENBREL [Suspect]
     Indication: PRODUCT USED FOR UNKNOWN INDICATION
     Dosage: 50 MG, QWK
  7. CLARITIN [Concomitant]
     Dosage: 10 UNK, UNK
  8. ADVAIR HFA [Concomitant]
  9. ALEVE [Concomitant]
     Dosage: 220 UNK, UNK

REACTIONS (1)
  - HYPERSENSITIVITY [None]
